FAERS Safety Report 6483075-8 (Version None)
Quarter: 2009Q4

REPORT INFORMATION
  Report Type: 
  Country: None (occurrence: None)
  Receive Date: 20091209
  Receipt Date: 20091204
  Transmission Date: 20100525
  Serious: Yes (Hospitalization, Other)
  Sender: FDA-Public Use
  Company Number: NL-ROCHE-650341

PATIENT
  Weight: 73.5 kg

DRUGS (9)
  1. CAPECITABINE [Suspect]
     Dosage: LAST DOSE PRIOR TO SAE: 03 AUGUST 2009. FREQ. AND ROUTE (PER PROTOCOL)
     Route: 065
     Dates: start: 20090223, end: 20090810
  2. EPIRUBICIN [Suspect]
     Dosage: ON DAY 1 EVERY 3 WEEKS, DOSAGE PER PROTOCOL, LAST DOSE PRIOR TO SAE: 03 AUGUST 2009
     Route: 042
     Dates: start: 20090223, end: 20090810
  3. CISPLATIN [Suspect]
     Dosage: ON DAY 1 EVERY THREE WEEKS, DOSAGE PER PROTOCOL, LAST DOSE PRIOR TO SAE: 03 AUGUST 2009
     Route: 042
     Dates: start: 20090223, end: 20090810
  4. OXAZEPAM [Concomitant]
  5. FLUCONAZOLE [Concomitant]
     Dates: start: 20090806
  6. POTASSIUM CHLORIDE [Concomitant]
     Dates: start: 20090806
  7. METOPROLOL [Concomitant]
     Dates: start: 20090806
  8. NEXIUM [Concomitant]
     Dates: start: 20090116, end: 20090810
  9. PRIMPERAN TAB [Concomitant]

REACTIONS (11)
  - ABDOMINAL PAIN UPPER [None]
  - ATRIAL FIBRILLATION [None]
  - C-REACTIVE PROTEIN INCREASED [None]
  - CLOSTRIDIAL INFECTION [None]
  - GENERAL PHYSICAL HEALTH DETERIORATION [None]
  - HAEMOGLOBIN DECREASED [None]
  - HYPOKALAEMIA [None]
  - NAUSEA [None]
  - NEUTROPHIL COUNT DECREASED [None]
  - VOMITING [None]
  - WHITE BLOOD CELL COUNT DECREASED [None]
